FAERS Safety Report 7536253-0 (Version None)
Quarter: 2011Q2

REPORT INFORMATION
  Report Type: 
  Country: None (occurrence: None)
  Receive Date: 20110608
  Receipt Date: 20110608
  Transmission Date: 20111010
  Serious: Yes (Hospitalization, Other)
  Sender: FDA-Public Use
  Company Number: None

PATIENT
  Age: 47 Year
  Sex: Female

DRUGS (2)
  1. CUBICIN [Suspect]
     Indication: OTITIS EXTERNA
     Dosage: 500 MG Q48H IV
     Route: 042
     Dates: start: 20110323, end: 20110328
  2. CIPRO [Suspect]
     Indication: CELLULITIS STAPHYLOCOCCAL
     Dosage: 400 MG Q24H
     Dates: start: 20110322, end: 20110328

REACTIONS (1)
  - MYOSITIS [None]
